FAERS Safety Report 18622144 (Version 1)
Quarter: 2020Q4

REPORT INFORMATION
  Report Type: Spontaneous
  Country: US (occurrence: US)
  Receive Date: 20201216
  Receipt Date: 20201216
  Transmission Date: 20210114
  Serious: Yes (Hospitalization)
  Sender: FDA-Public Use
  Company Number: US-APOTEX-2020AP023933

PATIENT
  Age: 17 Year
  Sex: Female

DRUGS (19)
  1. RISPERIDONE. [Suspect]
     Active Substance: RISPERIDONE
     Dosage: 3 MILLIGRAM, QD
     Route: 065
  2. OLANZAPINE. [Suspect]
     Active Substance: OLANZAPINE
     Indication: PSYCHOTIC SYMPTOM
     Dosage: 10 MILLIGRAM, Q.H.S.
     Route: 065
  3. DIVALPROEX [Suspect]
     Active Substance: DIVALPROEX SODIUM
     Dosage: 750 MILLIGRAM, Q.H.S.
     Route: 065
  4. LITHIUM. [Concomitant]
     Active Substance: LITHIUM
     Dosage: 300 MILLIGRAM, QD
     Route: 065
  5. LORAZEPAM. [Concomitant]
     Active Substance: LORAZEPAM
     Dosage: UNK UNK, PRN (DAILY AS NEEDED)
     Route: 065
  6. RISPERIDONE. [Suspect]
     Active Substance: RISPERIDONE
     Indication: PSYCHOTIC SYMPTOM
     Dosage: 1 MILLIGRAM, BID
     Route: 065
  7. DIPHENHYDRAMINE. [Suspect]
     Active Substance: DIPHENHYDRAMINE
     Indication: EXTRAPYRAMIDAL DISORDER
     Dosage: 25 MILLIGRAM, QD
     Route: 065
  8. RISPERIDONE. [Suspect]
     Active Substance: RISPERIDONE
     Dosage: 3 MILLIGRAM, BID
     Route: 065
  9. DIVALPROEX [Suspect]
     Active Substance: DIVALPROEX SODIUM
     Dosage: 1250 MILLIGRAM, Q.H.S.
     Route: 065
  10. LURASIDONE [Concomitant]
     Active Substance: LURASIDONE
     Indication: PSYCHOTIC SYMPTOM
     Dosage: 60 MILLIGRAM, QD
     Route: 065
  11. RISPERIDONE. [Suspect]
     Active Substance: RISPERIDONE
     Dosage: 4 MILLIGRAM, Q.H.S.
     Route: 065
  12. RISPERIDONE. [Suspect]
     Active Substance: RISPERIDONE
     Dosage: 2 MILLIGRAM, BID
     Route: 065
  13. DIPHENHYDRAMINE. [Suspect]
     Active Substance: DIPHENHYDRAMINE
     Dosage: 50 MILLIGRAM, Q.H.S.
     Route: 065
  14. CLONIDINE. [Concomitant]
     Active Substance: CLONIDINE
     Indication: AGGRESSION
     Dosage: 0.1 MILLIGRAM, Q.H.S.
     Route: 065
  15. SERTRALINE [Concomitant]
     Active Substance: SERTRALINE HYDROCHLORIDE
     Indication: DEPRESSIVE SYMPTOM
     Dosage: 100 MILLIGRAM, QD
     Route: 065
  16. LITHIUM. [Concomitant]
     Active Substance: LITHIUM
     Indication: AFFECTIVE DISORDER
     Dosage: 600 MILLIGRAM, Q.H.S.
     Route: 065
  17. LORAZEPAM. [Concomitant]
     Active Substance: LORAZEPAM
     Indication: ANXIETY
     Dosage: 1 MILLIGRAM, BID
     Route: 065
  18. DIVALPROEX [Suspect]
     Active Substance: DIVALPROEX SODIUM
     Indication: SCHIZOAFFECTIVE DISORDER BIPOLAR TYPE
     Dosage: 500 MILLIGRAM, Q.H.S.
     Route: 065
  19. LITHIUM. [Concomitant]
     Active Substance: LITHIUM
     Dosage: 300 MILLIGRAM, BID
     Route: 065

REACTIONS (8)
  - Drug level above therapeutic [Unknown]
  - Extrapyramidal disorder [Unknown]
  - Retching [Unknown]
  - Therapeutic product effect decreased [Unknown]
  - Mental status changes [Recovered/Resolved]
  - Musculoskeletal stiffness [Unknown]
  - Weight increased [Unknown]
  - Akathisia [Unknown]
